FAERS Safety Report 15425205 (Version 2)
Quarter: 2020Q2

REPORT INFORMATION
  Report Type: Spontaneous
  Country: GR (occurrence: GR)
  Receive Date: 20180925
  Receipt Date: 20200625
  Transmission Date: 20200713
  Serious: Yes (Other)
  Sender: FDA-Public Use
  Company Number: PHHY2018GR101014

PATIENT
  Age: 65 Year
  Sex: Female

DRUGS (1)
  1. PANTOPRAZOLE [Suspect]
     Active Substance: PANTOPRAZOLE
     Indication: PRODUCT USED FOR UNKNOWN INDICATION
     Dosage: 40 MILLIGRAM, QD
     Route: 065

REACTIONS (12)
  - Hyperaldosteronism [Unknown]
  - Vertigo [Unknown]
  - Gait disturbance [Unknown]
  - Hypocalcaemia [Unknown]
  - Cerebrovascular disorder [Unknown]
  - Vomiting [Unknown]
  - Nystagmus [Unknown]
  - Ataxia [Unknown]
  - Hypomagnesaemia [Unknown]
  - Muscle spasms [Unknown]
  - Hypokalaemia [Unknown]
  - Nausea [Unknown]
